FAERS Safety Report 7370706-3 (Version None)
Quarter: 2011Q1

REPORT INFORMATION
  Report Type: 
  Country: None (occurrence: None)
  Receive Date: 20110323
  Receipt Date: 20110303
  Transmission Date: 20110831
  Serious: Yes (Life-Threatening, Hospitalization)
  Sender: FDA-Public Use
  Company Number: GB-BAYER-2011-019990

PATIENT
  Age: 79 Year
  Sex: Female

DRUGS (7)
  1. RAMIPRIL [Concomitant]
     Dosage: 5 MG, BID
     Route: 048
  2. XARELTO [Interacting]
     Indication: HIP ARTHROPLASTY
  3. BISOPROLOL [Concomitant]
     Dosage: DAILY DOSE 3.75 MG
     Route: 048
  4. FUROSEMIDE [Concomitant]
     Dosage: DAILY DOSE 40 MG
     Route: 048
  5. XARELTO [Interacting]
     Indication: THROMBOSIS PROPHYLAXIS
     Dosage: 10 MG, QD
     Route: 048
     Dates: start: 20110116
  6. ACETYLSALICYLIC ACID SRT [Suspect]
     Dosage: DAILY DOSE 75 MG
     Route: 048
  7. ATORVASTATIN CALCIUM [Concomitant]
     Dosage: DAILY DOSE 30 MG

REACTIONS (1)
  - GASTROINTESTINAL HAEMORRHAGE [None]
